FAERS Safety Report 11319785 (Version 1)
Quarter: 2015Q3

REPORT INFORMATION
  Report Type: Spontaneous
  Country: GB (occurrence: GB)
  Receive Date: 20150729
  Receipt Date: 20150729
  Transmission Date: 20151125
  Serious: Yes (Other)
  Sender: FDA-Public Use
  Company Number: GB-ACTAVIS-2015-15382

PATIENT
  Age: 90 Year
  Sex: Female

DRUGS (2)
  1. CETIRIZINE (UNKNOWN) [Suspect]
     Active Substance: CETIRIZINE HYDROCHLORIDE
     Indication: PRURITUS
     Dosage: 10 MG, UNKNOWN
     Route: 048
     Dates: start: 20150702, end: 20150708
  2. WARFARIN (UNKNOWN) [Interacting]
     Active Substance: WARFARIN
     Indication: ANTICOAGULANT THERAPY
     Dosage: 1 MG, UNKNOWN
     Route: 048
     Dates: start: 201212

REACTIONS (2)
  - Drug interaction [Unknown]
  - International normalised ratio fluctuation [Recovering/Resolving]
